FAERS Safety Report 5359408-2 (Version None)
Quarter: 2007Q2

REPORT INFORMATION
  Report Type: 
  Country: None (occurrence: None)
  Receive Date: 20070615
  Receipt Date: 20070604
  Transmission Date: 20071010
  Serious: Yes (Other)
  Sender: FDA-Public Use
  Company Number: GB-PFIZER INC-2007035929

PATIENT
  Age: 53 Year
  Sex: Male
  Weight: 79 kg

DRUGS (1)
  1. CHAMPIX [Suspect]
     Indication: SMOKING CESSATION THERAPY
     Route: 048
     Dates: start: 20070320, end: 20070424

REACTIONS (6)
  - COLD SWEAT [None]
  - DRUG INEFFECTIVE [None]
  - HEART RATE INCREASED [None]
  - MALAISE [None]
  - NASOPHARYNGITIS [None]
  - TACHYCARDIA [None]
